FAERS Safety Report 19838686 (Version 1)
Quarter: 2021Q3

REPORT INFORMATION
  Report Type: Spontaneous
  Country: US (occurrence: US)
  Receive Date: 20210916
  Receipt Date: 20210916
  Transmission Date: 20211014
  Serious: No
  Sender: FDA-Public Use
  Company Number: US-ALLERGAN-2114431US

PATIENT
  Sex: Female

DRUGS (3)
  1. FETZIMA [Suspect]
     Active Substance: LEVOMILNACIPRAN HYDROCHLORIDE
     Dosage: 20 UNITS, QD
     Dates: start: 202102, end: 202102
  2. FETZIMA [Suspect]
     Active Substance: LEVOMILNACIPRAN HYDROCHLORIDE
     Dosage: 40 MG, QD
     Dates: start: 202010, end: 202102
  3. FETZIMA [Suspect]
     Active Substance: LEVOMILNACIPRAN HYDROCHLORIDE
     Indication: MAJOR DEPRESSION
     Dosage: 40 UNITS, QD
     Dates: start: 202102

REACTIONS (5)
  - Dark circles under eyes [Unknown]
  - Frustration tolerance decreased [Recovering/Resolving]
  - Depression [Recovering/Resolving]
  - Irritability [Recovering/Resolving]
  - Lid sulcus deepened [Unknown]

NARRATIVE: CASE EVENT DATE: 202011
